FAERS Safety Report 5212433-4 (Version None)
Quarter: 2007Q1

REPORT INFORMATION
  Report Type: 
  Country: None (occurrence: None)
  Receive Date: 20070118
  Receipt Date: 20070109
  Transmission Date: 20070707
  Serious: Yes (Other)
  Sender: FDA-Public Use
  Company Number: US-PFIZER INC-2005100287

PATIENT
  Sex: Male

DRUGS (14)
  1. GABAPENTIN [Suspect]
     Indication: BIPOLAR DISORDER
     Route: 048
     Dates: start: 20010101, end: 20030101
  2. GEODON [Concomitant]
     Dosage: TEXT:20MG AM + 40MG SUPPER
     Route: 048
  3. WELLBUTRIN [Concomitant]
     Route: 048
  4. REMERON [Concomitant]
     Route: 048
  5. TRAZODONE HCL [Concomitant]
     Route: 048
  6. PREDNISONE [Concomitant]
     Route: 048
  7. PERCOCET [Concomitant]
     Dosage: TEXT:7.5/325 MG-FREQ:2 TABS AT HS
     Route: 048
  8. PERCOCET [Concomitant]
     Dosage: TEXT:7.5/325 MG-FREQ:1 TAB Q 4HRS PRN
     Route: 048
  9. HYDROCODONE BITARTRATE + ACETAMINOPHEN [Concomitant]
     Dosage: TEXT:7.5MG/750 MG
     Route: 048
  10. HYDROCODONE BITARTRATE + ACETAMINOPHEN [Concomitant]
     Dosage: TEXT:7.5MG/500MG-FREQ:EVERY 6HRS PRN
     Route: 048
  11. ALPRAZOLAM [Concomitant]
     Indication: ANXIETY
     Route: 048
  12. OXYCONTIN [Concomitant]
     Dosage: DAILY DOSE:30MG-FREQ:10MG PM + 20MG BEDTIME
     Route: 048
  13. AZATHIOPRINE [Concomitant]
     Route: 048
  14. GABITRIL [Concomitant]
     Route: 048

REACTIONS (4)
  - DRUG INEFFECTIVE [None]
  - INTENTIONAL SELF-INJURY [None]
  - OVERDOSE [None]
  - SUICIDE ATTEMPT [None]
